FAERS Safety Report 21718734 (Version 1)
Quarter: 2022Q4

REPORT INFORMATION
  Report Type: Spontaneous
  Country: FR (occurrence: FR)
  Receive Date: 20221213
  Receipt Date: 20221213
  Transmission Date: 20230112
  Serious: Yes (Death, Other)
  Sender: FDA-Public Use
  Company Number: FR-BAXTER-2022BAX026220

PATIENT
  Age: 69 Year
  Sex: Female

DRUGS (4)
  1. CYCLOPHOSPHAMIDE [Suspect]
     Active Substance: CYCLOPHOSPHAMIDE
     Indication: Product used for unknown indication
     Dosage: UNK (100 MG/DOSE D1 TO D8 TREATMENT LINE NUMBER 1,TREATMENT DURATION: 2.8 MONTHS)
     Route: 065
     Dates: end: 20180117
  2. DEXAMETHASONE [Suspect]
     Active Substance: DEXAMETHASONE
     Indication: Product used for unknown indication
     Dosage: UNK (10 MG/DOSE D2, D8, D11, D12, D13 AND D14 TREATMENT LINE NUMBER 1, TREATMENT DURATION: 2.8 MONTH
     Route: 065
     Dates: end: 20180117
  3. LENALIDOMIDE [Suspect]
     Active Substance: LENALIDOMIDE
     Indication: Product used for unknown indication
     Dosage: UNK (5 MG/DOSE D5 TO D10 TREATMENT LINE NUMBER 1,TREATMENT DURATION: 2.8 MONTHS)
     Route: 065
     Dates: end: 20180117
  4. BORTEZOMIB [Suspect]
     Active Substance: BORTEZOMIB
     Indication: Product used for unknown indication
     Dosage: UNK (2.6 MG/DOSE DAY1. D4 D8 AND D11 TREATMENT LINE NUMBER 1, TREATMENT DURATION: 2.8 MONTHS)
     Route: 065
     Dates: end: 20180117

REACTIONS (2)
  - Death [Fatal]
  - Disease progression [Unknown]

NARRATIVE: CASE EVENT DATE: 20180120
